FAERS Safety Report 5229711-5 (Version None)
Quarter: 2007Q1

REPORT INFORMATION
  Report Type: 
  Country: None (occurrence: None)
  Receive Date: 20070206
  Receipt Date: 20070122
  Transmission Date: 20070707
  Serious: Yes (Hospitalization)
  Sender: FDA-Public Use
  Company Number: JP-ELI_LILLY_AND_COMPANY-JP200701004526

PATIENT
  Age: 65 Year
  Sex: Male
  Weight: 47 kg

DRUGS (3)
  1. DULOXETINE HYDROCHLORIDE [Suspect]
     Indication: MAJOR DEPRESSION
     Dates: start: 20061228, end: 20070104
  2. DULOXETINE HYDROCHLORIDE [Suspect]
     Dates: start: 20070105, end: 20070108
  3. HALCION [Concomitant]
     Indication: INSOMNIA
     Dosage: 0.5 MG, DAILY (1/D)
     Route: 048
     Dates: start: 20061221

REACTIONS (12)
  - ALANINE AMINOTRANSFERASE INCREASED [None]
  - ASPARTATE AMINOTRANSFERASE INCREASED [None]
  - BLOOD LACTATE DEHYDROGENASE INCREASED [None]
  - BLOOD TRIGLYCERIDES INCREASED [None]
  - CONVULSION [None]
  - DECREASED APPETITE [None]
  - GAMMA-GLUTAMYLTRANSFERASE INCREASED [None]
  - HEPATIC FUNCTION ABNORMAL [None]
  - IRRITABILITY [None]
  - LIVER DISORDER [None]
  - NAUSEA [None]
  - THIRST [None]
